FAERS Safety Report 7449822-3 (Version None)
Quarter: 2011Q2

REPORT INFORMATION
  Report Type: 
  Country: None (occurrence: None)
  Receive Date: 20110421
  Receipt Date: 20110411
  Transmission Date: 20111010
  Serious: Yes (Hospitalization, Other)
  Sender: FDA-Public Use
  Company Number: 2011AP000702

PATIENT
  Age: 88 Year
  Sex: Female

DRUGS (3)
  1. FLECAINIDE ACETATE [Suspect]
     Indication: ATRIAL FIBRILLATION
     Dosage: 100 MG;BID;
  2. METOPROLOL SUCCINATE [Suspect]
     Dosage: 200 MG;QD;
  3. ASPIRIN [Concomitant]

REACTIONS (8)
  - DEVICE MALFUNCTION [None]
  - DRUG INTERACTION [None]
  - DRUG CLEARANCE DECREASED [None]
  - SYNCOPE [None]
  - RENAL FAILURE CHRONIC [None]
  - TOXICITY TO VARIOUS AGENTS [None]
  - DEHYDRATION [None]
  - HYPERKALAEMIA [None]
